FAERS Safety Report 21853079 (Version 1)
Quarter: 2023Q1

REPORT INFORMATION
  Report Type: Spontaneous
  Country: DE (occurrence: DE)
  Receive Date: 20230112
  Receipt Date: 20230112
  Transmission Date: 20230418
  Serious: Yes (Hospitalization)
  Sender: FDA-Public Use
  Company Number: None

PATIENT
  Age: 57 Year
  Sex: Female
  Weight: 76 kg

DRUGS (2)
  1. PERJETA [Suspect]
     Active Substance: PERTUZUMAB
     Indication: Invasive breast carcinoma
     Dosage: CYCLE 840 MG/KG BW Q3W, ALL FURTHER CYCLES 420 MG/KG BW
     Route: 065
     Dates: start: 20220803, end: 20221228
  2. KANJINTI [Suspect]
     Active Substance: TRASTUZUMAB-ANNS
     Indication: Invasive breast carcinoma
     Dosage: 8MG/ KG KG I.V. 1. CYCLONE, UP TO 6 MG/KG KG I.V. Q3W
     Route: 065
     Dates: start: 20220803, end: 20221228

REACTIONS (5)
  - Drug intolerance [Recovering/Resolving]
  - Chills [Recovering/Resolving]
  - Pyrexia [Recovering/Resolving]
  - Hypersensitivity [Recovering/Resolving]
  - Limb discomfort [Recovering/Resolving]

NARRATIVE: CASE EVENT DATE: 20221026
